FAERS Safety Report 10863180 (Version 1)
Quarter: 2015Q1

REPORT INFORMATION
  Report Type: Spontaneous
  Country: US (occurrence: US)
  Receive Date: 20150224
  Receipt Date: 20150224
  Transmission Date: 20150721
  Serious: No
  Sender: FDA-Public Use
  Company Number: US-BAYER-2015-024111

PATIENT
  Age: 60 Year
  Sex: Male
  Weight: 88.44 kg

DRUGS (5)
  1. BAYER ASPIRIN REGIMEN REGULAR 325 MG STRENGTH [Concomitant]
     Active Substance: ASPIRIN
     Dosage: 0.25 DF, QD
     Route: 048
  2. DIOVAN [Concomitant]
     Active Substance: VALSARTAN
  3. ALEVE [Suspect]
     Active Substance: NAPROXEN SODIUM
     Dosage: 0.5 DF, QD
     Route: 048
     Dates: start: 20150131, end: 20150204
  4. ALEVE [Suspect]
     Active Substance: NAPROXEN SODIUM
     Dosage: 1 DF, QD
     Dates: start: 20150205, end: 20150207
  5. FUROSEMIDE. [Concomitant]
     Active Substance: FUROSEMIDE
     Dosage: UNK

REACTIONS (2)
  - Incorrect dose administered [None]
  - Joint swelling [Recovered/Resolved]

NARRATIVE: CASE EVENT DATE: 20150131
